FAERS Safety Report 9054280 (Version 2)
Quarter: 2013Q1

REPORT INFORMATION
  Report Type: Report from Study
  Country: US (occurrence: US)
  Receive Date: 20130208
  Receipt Date: 20130327
  Transmission Date: 20140127
  Serious: Yes (Death, Hospitalization)
  Sender: FDA-Public Use
  Company Number: US-VIIV HEALTHCARE LIMITED-B0865799A

PATIENT
  Sex: Male
  Weight: 57 kg

DRUGS (3)
  1. MARAVIROC [Suspect]
     Indication: HIV INFECTION
     Dosage: 150MG TWICE PER DAY
     Route: 048
     Dates: start: 20070808
  2. OSELTAMIVIR [Concomitant]
  3. ZOSYN [Concomitant]

REACTIONS (6)
  - Sepsis [Fatal]
  - Pneumonia [Fatal]
  - Upper respiratory tract infection [Not Recovered/Not Resolved]
  - Asthma [Not Recovered/Not Resolved]
  - Influenza [Fatal]
  - Cardio-respiratory arrest [Fatal]
